FAERS Safety Report 7352247-2 (Version None)
Quarter: 2011Q1

REPORT INFORMATION
  Report Type: 
  Country: None (occurrence: None)
  Receive Date: 20110309
  Receipt Date: 20110309
  Transmission Date: 20110831
  Serious: Yes (Hospitalization)
  Sender: FDA-Public Use
  Company Number: None

PATIENT
  Age: 73 Year
  Sex: Female
  Weight: 76 kg

DRUGS (14)
  1. VITAMIN D [Concomitant]
  2. PRADAXA [Suspect]
     Indication: ATRIAL FIBRILLATION
     Dosage: 150MG BID PO
     Route: 048
  3. DIGOXIN [Concomitant]
  4. TEKTURNA [Concomitant]
  5. PRAVASTATIN [Concomitant]
  6. ASPIRIN [Suspect]
     Indication: CARDIOVASCULAR EVENT PROPHYLAXIS
     Dosage: 81MG DAILY PO
     Route: 048
  7. ATENOLOL [Concomitant]
  8. VESICARE [Concomitant]
  9. TRAMADOL HCL [Concomitant]
  10. AMARYL [Concomitant]
  11. LOVAZA [Concomitant]
  12. ATACAND [Concomitant]
  13. RESERPINE [Concomitant]
  14. CHOLESTYRAMINE [Concomitant]

REACTIONS (3)
  - GASTROINTESTINAL HAEMORRHAGE [None]
  - ANAEMIA [None]
  - HYPOTENSION [None]
